FAERS Safety Report 11629318 (Version 8)
Quarter: 2016Q1

REPORT INFORMATION
  Report Type: Spontaneous
  Country: US (occurrence: US)
  Receive Date: 20151014
  Receipt Date: 20160104
  Transmission Date: 20160525
  Serious: No
  Sender: FDA-Public Use
  Company Number: US-ACTELION PHARMACEUTICALS US, INC.-A-NJ2015-125356

PATIENT
  Age: 68 Year
  Sex: Female

DRUGS (6)
  1. REMODULIN [Suspect]
     Active Substance: TREPROSTINIL
     Dosage: 0.022 MCG/KG/MIN
     Route: 058
  2. REVATIO [Concomitant]
     Active Substance: SILDENAFIL CITRATE
  3. OPSUMIT [Suspect]
     Active Substance: MACITENTAN
     Dosage: 5 MG, QD
     Route: 048
  4. REMODULIN [Suspect]
     Active Substance: TREPROSTINIL
     Indication: PULMONARY ARTERIAL HYPERTENSION
     Dosage: 35.5 NG/KG, PER MIN
     Route: 058
     Dates: start: 20130515
  5. OPSUMIT [Suspect]
     Active Substance: MACITENTAN
     Indication: PULMONARY ARTERIAL HYPERTENSION
     Dosage: 10 MG, QD
     Route: 048
     Dates: start: 20150924
  6. WARFARIN [Concomitant]
     Active Substance: WARFARIN

REACTIONS (6)
  - Palpitations [Unknown]
  - Heart rate increased [Unknown]
  - Injection site haemorrhage [Unknown]
  - Oedema peripheral [Unknown]
  - Anxiety [Unknown]
  - Weight increased [Unknown]
